FAERS Safety Report 6998356-9 (Version None)
Quarter: 2010Q3

REPORT INFORMATION
  Report Type: 
  Country: None (occurrence: None)
  Receive Date: 20100920
  Receipt Date: 20100908
  Transmission Date: 20110219
  Serious: No
  Sender: FDA-Public Use
  Company Number: US-JNJFOC-20100904158

PATIENT
  Sex: Female
  Weight: 71.67 kg

DRUGS (2)
  1. FENTANYL [Suspect]
     Indication: COMPLEX REGIONAL PAIN SYNDROME
     Dosage: 100UG/HR 2 PATCHES EVERY 48 HRS
     Route: 062
  2. FENTANYL [Suspect]
     Indication: PAIN
     Dosage: 100UG/HR 2 PATCHES EVERY 48 HRS
     Route: 062

REACTIONS (6)
  - DRUG INEFFECTIVE [None]
  - INCORRECT DRUG ADMINISTRATION DURATION [None]
  - INSOMNIA [None]
  - PAIN [None]
  - PRODUCT ADHESION ISSUE [None]
  - WRONG TECHNIQUE IN DRUG USAGE PROCESS [None]
